FAERS Safety Report 14502974 (Version 1)
Quarter: 2018Q1

REPORT INFORMATION
  Report Type: Spontaneous
  Country: US (occurrence: US)
  Receive Date: 20180207
  Receipt Date: 20180207
  Transmission Date: 20180509
  Serious: Yes (Other)
  Sender: FDA-Public Use
  Company Number: None

PATIENT
  Age: 74 Year
  Sex: Male

DRUGS (1)
  1. NORDITROPIN [Suspect]
     Active Substance: SOMATROPIN
     Indication: HYPOPITUITARISM
     Route: 058

REACTIONS (5)
  - Fatigue [None]
  - Feeling abnormal [None]
  - Palpitations [None]
  - Disorientation [None]
  - Balance disorder [None]

NARRATIVE: CASE EVENT DATE: 20180204
